FAERS Safety Report 9472435 (Version 1)
Quarter: 2013Q3

REPORT INFORMATION
  Report Type: Spontaneous
  Country: US (occurrence: US)
  Receive Date: 20130823
  Receipt Date: 20130823
  Transmission Date: 20140515
  Serious: Yes (Other)
  Sender: FDA-Public Use
  Company Number: US-PFIZER INC-2013244012

PATIENT
  Age: 50 Year
  Sex: Male
  Weight: 83.9 kg

DRUGS (3)
  1. NEURONTIN [Suspect]
     Indication: INTERVERTEBRAL DISC DEGENERATION
     Dosage: 200 MG/DAY
  2. NEURONTIN [Suspect]
     Indication: PAIN
  3. LANTUS [Concomitant]
     Indication: DIABETES MELLITUS
     Dosage: UNK, 2X/DAY

REACTIONS (2)
  - Loss of consciousness [Unknown]
  - Atrioventricular block [Unknown]
